FAERS Safety Report 9980211 (Version 1)
Quarter: 2014Q1

REPORT INFORMATION
  Report Type: Report from Study
  Country: US (occurrence: US)
  Receive Date: 20140307
  Receipt Date: 20140307
  Transmission Date: 20141002
  Serious: No
  Sender: FDA-Public Use
  Company Number: US-ABBVIE-13P-163-1174831-00

PATIENT
  Age: 50 Year
  Sex: Female

DRUGS (8)
  1. HUMIRA [Suspect]
     Indication: RHEUMATOID ARTHRITIS
     Dates: start: 20130926
  2. METHOTREXATE [Concomitant]
     Indication: RHEUMATOID ARTHRITIS
  3. LEUCOVORIN [Concomitant]
     Indication: VITAMIN SUPPLEMENTATION
     Dosage: 5 MG WEEKLY
  4. TOPROLOL [Concomitant]
     Indication: HEART RATE IRREGULAR
  5. SYNTHROID [Concomitant]
     Indication: THYROID DISORDER
     Dosage: 0.125 MG ON ODD DAYS AND 0.112 ON EVEN DAYS
  6. MOTRIN [Concomitant]
     Indication: ARTHRALGIA
     Dosage: AS NEEDED
  7. NORCO [Concomitant]
     Indication: PAIN
     Dosage: 7.5-325 MG
  8. CITRANATAL ASSURE [Concomitant]
     Indication: VITAMIN SUPPLEMENTATION

REACTIONS (2)
  - Injection site pain [Recovered/Resolved]
  - Injection site pain [Recovered/Resolved]
